FAERS Safety Report 10936298 (Version 1)
Quarter: 2015Q1

REPORT INFORMATION
  Report Type: Spontaneous
  Country: US (occurrence: None)
  Receive Date: 20150320
  Receipt Date: 20150320
  Transmission Date: 20150721
  Serious: Yes (Disabling)
  Sender: FDA-Public Use
  Company Number: None

PATIENT
  Age: 30 Year
  Sex: Male
  Weight: 81.65 kg

DRUGS (1)
  1. CIPROFLOXACIN. [Suspect]
     Active Substance: CIPROFLOXACIN
     Indication: PROSTATITIS
     Dates: start: 20141006, end: 20141031

REACTIONS (8)
  - Pain in extremity [None]
  - Impaired work ability [None]
  - Asthenia [None]
  - Hypoaesthesia [None]
  - Tendon pain [None]
  - Myalgia [None]
  - Quality of life decreased [None]
  - Paraesthesia [None]

NARRATIVE: CASE EVENT DATE: 20141006
